FAERS Safety Report 4749171-8 (Version None)
Quarter: 2005Q3

REPORT INFORMATION
  Report Type: 
  Country: None (occurrence: None)
  Receive Date: 20050817
  Receipt Date: 20050808
  Transmission Date: 20060218
  Serious: Yes (Life-Threatening)
  Sender: FDA-Public Use
  Company Number: 2005-131233-NL

PATIENT
  Age: 56 Year
  Sex: Female

DRUGS (4)
  1. MIRTAZAPINE (BATCH #: 694928 / 682221) [Suspect]
     Indication: EATING DISORDER
     Dosage: 30 MG ORAL
     Route: 048
     Dates: end: 20050614
  2. DIHYDROCODEINE [Concomitant]
  3. SALMETEROL [Concomitant]
  4. TEMAZEPAM [Concomitant]

REACTIONS (6)
  - ACUTE ABDOMEN [None]
  - DIARRHOEA [None]
  - HEADACHE [None]
  - METABOLIC ACIDOSIS [None]
  - MULTI-ORGAN FAILURE [None]
  - VOMITING [None]
